FAERS Safety Report 4797276-8 (Version None)
Quarter: 2005Q3

REPORT INFORMATION
  Report Type: 
  Country: None (occurrence: None)
  Receive Date: 20050930
  Receipt Date: 20050811
  Transmission Date: 20060218
  Serious: Yes (Disabling, Other)
  Sender: FDA-Public Use
  Company Number: 200511528BWH

PATIENT
  Age: 52 Year
  Sex: Male

DRUGS (3)
  1. CIPRO XR [Suspect]
     Indication: PROSTATITIS
     Dosage: 500 MG, QD, ORAL
     Route: 048
     Dates: start: 20050610, end: 20050710
  2. BENICAR [Concomitant]
  3. MOBIC [Concomitant]

REACTIONS (1)
  - TENDON RUPTURE [None]
